FAERS Safety Report 6606456-8 (Version None)
Quarter: 2010Q1

REPORT INFORMATION
  Report Type: 
  Country: None (occurrence: None)
  Receive Date: 20100226
  Receipt Date: 20100215
  Transmission Date: 20100710
  Serious: Yes (Other)
  Sender: FDA-Public Use
  Company Number: PHEH2008US05674

PATIENT
  Sex: Female

DRUGS (6)
  1. AREDIA [Suspect]
     Indication: BONE DENSITY DECREASED
     Dosage: UNK
     Dates: end: 20050101
  2. AMOXIL ^AYERST LAB^ [Concomitant]
  3. DOXYCYCLINE [Concomitant]
     Dosage: 100 MG, UNK
  4. CHLORHEXIDINE GLUCONATE [Concomitant]
  5. DURICEF [Concomitant]
  6. PERIDEX [Concomitant]

REACTIONS (16)
  - ANXIETY [None]
  - BONE DISORDER [None]
  - FALL [None]
  - HAND FRACTURE [None]
  - HYPOAESTHESIA FACIAL [None]
  - INJURY [None]
  - KYPHOSIS [None]
  - METASTASES TO BONE [None]
  - OEDEMA PERIPHERAL [None]
  - OSTEONECROSIS [None]
  - OSTEOPENIA [None]
  - PAIN [None]
  - PAIN IN JAW [None]
  - PHYSICAL DISABILITY [None]
  - PRIMARY SEQUESTRUM [None]
  - SPINAL OSTEOARTHRITIS [None]
